FAERS Safety Report 17299265 (Version 3)
Quarter: 2022Q4

REPORT INFORMATION
  Report Type: Report from Study
  Country: US (occurrence: US)
  Receive Date: 20200121
  Receipt Date: 20221213
  Transmission Date: 20230113
  Serious: Yes (Other)
  Sender: FDA-Public Use
  Company Number: US-TAKEDA-2020TUS003386

PATIENT
  Sex: Male
  Weight: 88 kg

DRUGS (28)
  1. BORTEZOMIB [Suspect]
     Active Substance: BORTEZOMIB
     Indication: Plasma cell myeloma
     Dosage: UNK
     Route: 065
  2. BORTEZOMIB [Suspect]
     Active Substance: BORTEZOMIB
     Dosage: 2 MILLIGRAM, Q2WEEKS
     Route: 058
  3. DARZALEX [Suspect]
     Active Substance: DARATUMUMAB
     Indication: Plasma cell myeloma
     Dosage: 1600 MILLIGRAM
     Route: 042
     Dates: start: 20171030, end: 201712
  4. DARZALEX [Suspect]
     Active Substance: DARATUMUMAB
     Dosage: 1600 MILLIGRAM
     Route: 042
     Dates: start: 201808
  5. CORDARONE [Concomitant]
     Active Substance: AMIODARONE HYDROCHLORIDE
     Indication: Arrhythmia
     Dosage: 200 MILLIGRAM, QOD
     Route: 048
  6. ANDROGEL [Concomitant]
     Active Substance: TESTOSTERONE
     Indication: Blood testosterone decreased
     Dosage: UNK UNK, QD
     Route: 048
  7. LIPITOR [Concomitant]
     Active Substance: ATORVASTATIN CALCIUM
     Indication: Blood cholesterol
     Dosage: 10 MILLIGRAM, 2/WEEK
     Route: 048
  8. COREG [Concomitant]
     Active Substance: CARVEDILOL
     Indication: Blood pressure measurement
     Dosage: 12.5 MILLIGRAM, QD
     Route: 048
  9. COREG [Concomitant]
     Active Substance: CARVEDILOL
     Indication: Cardiac failure
  10. INSPRA                             /01362602/ [Concomitant]
     Indication: Cardiac failure
     Dosage: 25 MILLIGRAM, QD
     Route: 048
  11. GLUCOPHAGE [Concomitant]
     Active Substance: METFORMIN HYDROCHLORIDE
     Indication: Type 2 diabetes mellitus
     Dosage: 500 MILLIGRAM, BID
     Route: 048
  12. NEXIUM [Concomitant]
     Active Substance: ESOMEPRAZOLE MAGNESIUM
     Indication: Gastrooesophageal reflux disease
     Dosage: 20 MILLIGRAM, QD
     Route: 048
  13. SILDENAFIL [Concomitant]
     Active Substance: SILDENAFIL
     Indication: Nocturia
     Dosage: 20 MILLIGRAM, QD
     Route: 048
  14. COUMADIN                           /00014802/ [Concomitant]
     Dosage: 7 MILLIGRAM, QD
     Route: 048
  15. VITAMIN B12 [Concomitant]
     Active Substance: CYANOCOBALAMIN
     Dosage: UNK UNK, MONTHLY
     Route: 030
  16. DEMADEX                            /01036501/ [Concomitant]
     Indication: Cardiac failure
     Dosage: 20 MILLIGRAM, QD
     Route: 030
  17. CO Q 10                            /00517201/ [Concomitant]
     Dosage: 100 MILLIGRAM, QD
     Route: 048
  18. VITAMIN D3 [Concomitant]
     Active Substance: CHOLECALCIFEROL
     Dosage: UNK UNK, BID
     Route: 048
  19. DIMAGNESIUM MALATE [Concomitant]
     Dosage: 500 MILLIGRAM, BID
     Route: 048
  20. MOMETASONE FUROATE [Concomitant]
     Active Substance: MOMETASONE FUROATE
     Dosage: 50 MICROGRAM, BID
     Route: 045
  21. VITAMIN K2 FUSO [Concomitant]
     Dosage: 100 MICROGRAM, QD
     Route: 048
  22. REVLIMID [Concomitant]
     Active Substance: LENALIDOMIDE
     Dosage: 5 MILLIGRAM, QOD
     Route: 048
  23. BENADRYL [Concomitant]
     Active Substance: DIPHENHYDRAMINE HYDROCHLORIDE
     Dosage: 50 MILLIGRAM
     Route: 042
  24. TYLENOL                            /00020001/ [Concomitant]
     Dosage: 500 MILLIGRAM
     Route: 048
  25. CHONDROITIN SULFATE SODIUM;GLUCOSAMINE [Concomitant]
     Dosage: UNK UNK, BID
     Route: 048
  26. ZOMETA [Concomitant]
     Active Substance: ZOLEDRONIC ACID
     Indication: Osteopenia
     Dosage: 4 MILLIGRAM, Q3MONTHS
     Route: 042
  27. ZOMETA [Concomitant]
     Active Substance: ZOLEDRONIC ACID
     Indication: Plasma cell myeloma
  28. ENTRESTO [Concomitant]
     Active Substance: SACUBITRIL\VALSARTAN
     Indication: Cardiac failure
     Dosage: UNK UNK, BID
     Route: 048

REACTIONS (7)
  - Neuropathy peripheral [Unknown]
  - Peripheral swelling [Unknown]
  - Stress [Unknown]
  - Abdominal discomfort [Unknown]
  - Hypoaesthesia [Not Recovered/Not Resolved]
  - Herpes zoster [Recovering/Resolving]
  - Dyspepsia [Unknown]

NARRATIVE: CASE EVENT DATE: 20190101
